FAERS Safety Report 18941819 (Version 1)
Quarter: 2021Q1

REPORT INFORMATION
  Report Type: Spontaneous
  Country: US (occurrence: US)
  Receive Date: 20210225
  Receipt Date: 20210225
  Transmission Date: 20210420
  Serious: Yes (Other)
  Sender: FDA-Public Use
  Company Number: US-ABBVIE-21K-163-3787483-00

PATIENT
  Age: 64 Year
  Sex: Male

DRUGS (2)
  1. DUOPA [Suspect]
     Active Substance: CARBIDOPA\LEVODOPA
  2. DUOPA [Suspect]
     Active Substance: CARBIDOPA\LEVODOPA
     Indication: PARKINSON^S DISEASE
     Route: 050
     Dates: start: 2009

REACTIONS (4)
  - Deep brain stimulation [Unknown]
  - Device dislocation [Not Recovered/Not Resolved]
  - Parkinson^s disease [Unknown]
  - Gait disturbance [Unknown]

NARRATIVE: CASE EVENT DATE: 201909
